FAERS Safety Report 8078148-2 (Version None)
Quarter: 2012Q1

REPORT INFORMATION
  Report Type: 
  Country: None (occurrence: None)
  Receive Date: 20120127
  Receipt Date: 20110109
  Transmission Date: 20120608
  Serious: No
  Sender: FDA-Public Use
  Company Number: US-ABBOTT-10P-163-0688872-00

PATIENT
  Sex: Female
  Weight: 88.53 kg

DRUGS (18)
  1. FOLIC ACID [Concomitant]
     Indication: PRODUCT USED FOR UNKNOWN INDICATION
  2. PHENERGAN [Concomitant]
     Indication: NAUSEA
     Route: 048
  3. POTASSIUM [Concomitant]
  4. BETAPACE [Concomitant]
     Indication: PRODUCT USED FOR UNKNOWN INDICATION
     Route: 048
  5. PREDNISONE [Concomitant]
     Indication: PRODUCT USED FOR UNKNOWN INDICATION
  6. NEXIUM [Concomitant]
     Indication: ABDOMINAL PAIN UPPER
  7. SYNTHROID [Concomitant]
     Indication: PRODUCT USED FOR UNKNOWN INDICATION
  8. LASIX [Concomitant]
     Indication: FLUID RETENTION
  9. HYDROCODONE [Concomitant]
     Indication: PAIN
     Dosage: 10/500 MG TWO EVERY FOUR HOURS AS NEEDED
  10. ONDANSETRON HCL [Concomitant]
     Indication: NAUSEA
  11. THYROID TAB [Concomitant]
     Indication: HYPOTHYROIDISM
  12. GLYBURIDE [Concomitant]
     Indication: DIABETES MELLITUS
  13. MULTI-VITAMINS [Concomitant]
     Indication: PRODUCT USED FOR UNKNOWN INDICATION
     Route: 048
  14. BETAPACE [Concomitant]
  15. COZAAR [Concomitant]
     Indication: HYPERTENSION
  16. POTASSIUM [Concomitant]
     Indication: MINERAL SUPPLEMENTATION
  17. HUMIRA [Suspect]
     Indication: CROHN'S DISEASE
     Dates: start: 20101122, end: 20101122
  18. HUMIRA [Suspect]
     Dates: start: 20101122, end: 20101222

REACTIONS (11)
  - ABDOMINAL PAIN [None]
  - HYPERHIDROSIS [None]
  - HAEMATOCHEZIA [None]
  - DIARRHOEA [None]
  - FATIGUE [None]
  - NAUSEA [None]
  - RECTAL HAEMORRHAGE [None]
  - OEDEMA PERIPHERAL [None]
  - FACE OEDEMA [None]
  - THROMBOSIS [None]
  - MEMORY IMPAIRMENT [None]
